FAERS Safety Report 11560096 (Version 1)
Quarter: 2015Q3

REPORT INFORMATION
  Report Type: Spontaneous
  Country: US (occurrence: US)
  Receive Date: 20150916
  Receipt Date: 20150916
  Transmission Date: 20151125
  Serious: No
  Sender: FDA-Public Use
  Company Number: US-ELI_LILLY_AND_COMPANY-US200809002768

PATIENT

DRUGS (1)
  1. FORTEO [Suspect]
     Active Substance: TERIPARATIDE
     Dates: start: 20080618, end: 20080821

REACTIONS (11)
  - Constipation [Unknown]
  - Haemorrhage [Unknown]
  - Pain [Unknown]
  - Weight decreased [Unknown]
  - Gastrointestinal stenosis [Recovering/Resolving]
  - Nausea [Recovered/Resolved]
  - Abdominal pain upper [Recovered/Resolved]
  - Dysphagia [Unknown]
  - Fatigue [Recovered/Resolved]
  - Anxiety [Unknown]
  - Gastric disorder [Unknown]

NARRATIVE: CASE EVENT DATE: 20080805
